FAERS Safety Report 6388820-8 (Version None)
Quarter: 2009Q4

REPORT INFORMATION
  Report Type: 
  Country: None (occurrence: None)
  Receive Date: 20091005
  Receipt Date: 20090923
  Transmission Date: 20100525
  Serious: Yes (Hospitalization, Disabling)
  Sender: FDA-Public Use
  Company Number: JP-GILEAD-2009-0024340

PATIENT
  Sex: Male

DRUGS (13)
  1. TRUVADA [Suspect]
     Indication: HIV INFECTION
     Route: 048
     Dates: start: 20070926, end: 20081008
  2. PREZISTA [Suspect]
     Indication: HIV INFECTION
     Route: 048
     Dates: start: 20071013, end: 20081008
  3. T-20 [Suspect]
     Indication: HIV INFECTION
     Route: 042
     Dates: start: 20071013, end: 20071110
  4. T-20 [Suspect]
     Route: 042
     Dates: start: 20080507, end: 20080925
  5. STOCRIN [Suspect]
     Indication: HIV INFECTION
     Route: 048
     Dates: start: 20071013, end: 20080925
  6. NORVIR [Suspect]
     Indication: HIV INFECTION
     Route: 048
     Dates: start: 20071013, end: 20081008
  7. TETRAMIDE [Concomitant]
  8. PAXIL [Concomitant]
  9. LEXOTAN [Concomitant]
  10. HIRNAMIN [Concomitant]
  11. RISPERDAL [Concomitant]
  12. DEPAKENE [Concomitant]
  13. LENDORMIN [Concomitant]

REACTIONS (2)
  - AIDS ENCEPHALOPATHY [None]
  - INTRACRANIAL HAEMATOMA [None]
